FAERS Safety Report 9118519 (Version 1)
Quarter: 2013Q1

REPORT INFORMATION
  Report Type: Spontaneous
  Country: GB (occurrence: GB)
  Receive Date: 20130226
  Receipt Date: 20130226
  Transmission Date: 20140127
  Serious: Yes (Disabling, Other)
  Sender: FDA-Public Use
  Company Number: GB-AMGEN-GBRSP2013012630

PATIENT
  Age: 56 Year
  Sex: Female
  Weight: 80 kg

DRUGS (9)
  1. ENBREL [Suspect]
     Indication: RHEUMATOID ARTHRITIS
     Dosage: 50 MG, WEEKLY
     Route: 058
     Dates: start: 20080512, end: 20121208
  2. HYDROXYCHLOROQUINE [Concomitant]
     Dosage: UNK UNK, UNK
  3. OXYBUTYNIN [Concomitant]
     Dosage: UNK UNK, UNK
  4. FOLIC ACID [Concomitant]
     Dosage: UNK
  5. METHOTREXATE [Concomitant]
     Dosage: UNK
  6. SULFASALAZINE [Concomitant]
     Dosage: UNK
  7. AMLODIPINE [Concomitant]
     Dosage: UNK
  8. OMEPRAZOLE [Concomitant]
     Dosage: UNK
  9. MIRTAZAPINE [Concomitant]
     Dosage: UNK

REACTIONS (7)
  - Dyspnoea exertional [Unknown]
  - Palpitations [Unknown]
  - Orthopnoea [Unknown]
  - Left ventricular dysfunction [Unknown]
  - Congestive cardiomyopathy [Unknown]
  - Right ventricular dysfunction [Unknown]
  - Cardiac failure [Not Recovered/Not Resolved]
